FAERS Safety Report 8881598 (Version 1)
Quarter: 2012Q4

REPORT INFORMATION
  Report Type: 
  Country: US (occurrence: US)
  Receive Date: 20121102
  Receipt Date: 20121102
  Transmission Date: 20130627
  Serious: Yes (Other)
  Sender: FDA-Public Use
  Company Number: US-BAYER-2012-112900

PATIENT
  Age: 31 Year
  Sex: Female

DRUGS (2)
  1. BETASERON [Suspect]
     Indication: MULTIPLE SCLEROSIS
     Dosage: UNK
     Dates: start: 20120911
  2. BETASERON [Suspect]
     Indication: MULTIPLE SCLEROSIS
     Dosage: 6 miu, QOD
     Route: 058
     Dates: start: 201210

REACTIONS (3)
  - Mobility decreased [Not Recovered/Not Resolved]
  - Feeling abnormal [Not Recovered/Not Resolved]
  - Injection site mass [Not Recovered/Not Resolved]
